FAERS Safety Report 13957703 (Version 3)
Quarter: 2017Q4

REPORT INFORMATION
  Report Type: Spontaneous
  Country: JP (occurrence: JP)
  Receive Date: 20170911
  Receipt Date: 20171116
  Transmission Date: 20180320
  Serious: No
  Sender: FDA-Public Use
  Company Number: JP-ASTRAZENECA-2017SE92392

PATIENT
  Age: 20422 Day
  Sex: Female

DRUGS (2)
  1. CRESTOR [Suspect]
     Active Substance: ROSUVASTATIN CALCIUM
     Indication: DYSLIPIDAEMIA
     Route: 048
     Dates: start: 20170427, end: 20170918
  2. BUFFERIN [Concomitant]
     Active Substance: ASPIRIN
     Indication: RETINAL VASCULAR OCCLUSION
     Route: 048
     Dates: start: 20170627

REACTIONS (2)
  - Alopecia [Unknown]
  - Weight decreased [Unknown]

NARRATIVE: CASE EVENT DATE: 20170527
